FAERS Safety Report 25993869 (Version 1)
Quarter: 2025Q4

REPORT INFORMATION
  Report Type: Spontaneous
  Country: EU (occurrence: EU)
  Receive Date: 20251104
  Receipt Date: 20251104
  Transmission Date: 20260118
  Serious: Yes (Other)
  Sender: TEVA
  Company Number: EU-TEVA-VS-3387930

PATIENT
  Age: 0 Day
  Sex: Male

DRUGS (3)
  1. COPAXONE [Suspect]
     Active Substance: GLATIRAMER ACETATE
     Indication: Multiple sclerosis
     Dosage: TIME INTERVAL: 0.33333333 WEEKS
     Route: 064
     Dates: start: 20161007, end: 20240507
  2. COPAXONE [Suspect]
     Active Substance: GLATIRAMER ACETATE
     Dosage: TIME INTERVAL: 0.33333333 WEEKS
     Route: 064
     Dates: start: 20250130
  3. CHOLECALCIFEROL [Concomitant]
     Active Substance: CHOLECALCIFEROL
     Indication: Product used for unknown indication
     Dosage: 20000 IE
     Route: 064

REACTIONS (3)
  - Foetal distress syndrome [Unknown]
  - Foetal exposure during pregnancy [Unknown]
  - Exposure via breast milk [Unknown]

NARRATIVE: CASE EVENT DATE: 20250112
